FAERS Safety Report 8960184 (Version 2)
Quarter: 2013Q1

REPORT INFORMATION
  Report Type: Spontaneous
  Country: JP (occurrence: JP)
  Receive Date: 20121212
  Receipt Date: 20130304
  Transmission Date: 20140127
  Serious: Yes (Hospitalization)
  Sender: FDA-Public Use
  Company Number: PHHY2012JP035715

PATIENT
  Age: 41 Year
  Sex: Female
  Weight: 47 kg

DRUGS (9)
  1. TEGRETOL [Suspect]
     Indication: TRIGEMINAL NEURALGIA
     Dosage: 100 MG, DAILY
     Route: 048
     Dates: start: 20120318, end: 20120414
  2. NEUROTROPIN [Concomitant]
  3. TRAMACET [Concomitant]
  4. RIVOTRIL [Concomitant]
  5. METHYCOBAL [Concomitant]
  6. PRIMPERAN [Concomitant]
  7. XYZAL [Concomitant]
  8. ACONINSUN [Concomitant]
  9. CELESTAMIN [Concomitant]

REACTIONS (5)
  - Measles [Unknown]
  - Rash [Unknown]
  - Pyrexia [Unknown]
  - Hypersensitivity [Unknown]
  - Erythema [Unknown]
